FAERS Safety Report 18226837 (Version 2)
Quarter: 2020Q4

REPORT INFORMATION
  Report Type: Report from Study
  Country: None (occurrence: US)
  Receive Date: 20200903
  Receipt Date: 20201105
  Transmission Date: 20210113
  Serious: Yes (Hospitalization, Other)
  Sender: FDA-Public Use
  Company Number: US-ABBVIE-20K-163-3425806-00

PATIENT
  Sex: Female
  Weight: 68.1 kg

DRUGS (4)
  1. HUMIRA [Suspect]
     Active Substance: ADALIMUMAB
     Route: 058
     Dates: start: 202006
  2. HUMIRA [Suspect]
     Active Substance: ADALIMUMAB
     Indication: CROHN^S DISEASE
     Route: 058
  3. IBUPROFEN. [Concomitant]
     Active Substance: IBUPROFEN
     Indication: ARTHRALGIA
     Route: 065
  4. HUMIRA [Suspect]
     Active Substance: ADALIMUMAB
     Indication: COLITIS ULCERATIVE
     Route: 058
     Dates: start: 2017, end: 202004

REACTIONS (16)
  - Gastroenteritis norovirus [Recovered/Resolved]
  - Blood count abnormal [Recovered/Resolved]
  - Rotator cuff syndrome [Recovering/Resolving]
  - Herpes zoster [Recovered/Resolved]
  - White blood cell count increased [Unknown]
  - Chondropathy [Recovering/Resolving]
  - Pain [Not Recovered/Not Resolved]
  - Cartilage injury [Recovering/Resolving]
  - Dehydration [Recovered/Resolved]
  - Exposure to SARS-CoV-2 [Unknown]
  - Gastroenteritis norovirus [Recovered/Resolved]
  - Dehydration [Recovered/Resolved]
  - Musculoskeletal stiffness [Not Recovered/Not Resolved]
  - Arthropathy [Recovering/Resolving]
  - Arthralgia [Recovering/Resolving]
  - Hypertension [Recovering/Resolving]

NARRATIVE: CASE EVENT DATE: 2017
